FAERS Safety Report 10064451 (Version 1)
Quarter: 2014Q2

REPORT INFORMATION
  Report Type: Spontaneous
  Country: US (occurrence: None)
  Receive Date: 20140407
  Receipt Date: 20140407
  Transmission Date: 20141212
  Serious: Yes (Hospitalization)
  Sender: FDA-Public Use
  Company Number: None

PATIENT
  Age: 10 Year
  Sex: Female
  Weight: 60.6 kg

DRUGS (1)
  1. PREDNISONE [Suspect]
     Dates: end: 20140309

REACTIONS (6)
  - Gastric ulcer perforation [None]
  - Fungal infection [None]
  - Generalised tonic-clonic seizure [None]
  - Hypertension [None]
  - Musculoskeletal pain [None]
  - Posterior reversible encephalopathy syndrome [None]
